FAERS Safety Report 4582797-3 (Version None)
Quarter: 2005Q1

REPORT INFORMATION
  Report Type: 
  Country: None (occurrence: None)
  Receive Date: 20050215
  Receipt Date: 20050131
  Transmission Date: 20050727
  Serious: Yes (Hospitalization)
  Sender: FDA-Public Use
  Company Number: 2004-12-1365

PATIENT
  Age: 59 Year
  Sex: Male
  Weight: 76 kg

DRUGS (4)
  1. ZOPHREN [Suspect]
     Dosage: 24MG PER DAY
     Route: 042
     Dates: start: 20041115, end: 20041115
  2. POLARAMINE [Suspect]
     Dosage: 5MG PER DAY
     Route: 042
     Dates: start: 20041115, end: 20041115
  3. GEMZAR [Suspect]
     Indication: PANCREATIC CARCINOMA
     Dosage: 1900MG PER DAY
     Route: 042
     Dates: start: 20041115, end: 20041115
  4. FLUOROURACIL [Suspect]
     Indication: PANCREATIC CARCINOMA
     Dosage: 3800MG PER DAY
     Route: 042
     Dates: start: 20041115, end: 20041116

REACTIONS (3)
  - CHILLS [None]
  - PYREXIA [None]
  - RENAL FAILURE [None]
